FAERS Safety Report 16479968 (Version 11)
Quarter: 2020Q3

REPORT INFORMATION
  Report Type: Report from Study
  Country: US (occurrence: US)
  Receive Date: 20190626
  Receipt Date: 20200728
  Transmission Date: 20201102
  Serious: Yes (Hospitalization, Other)
  Sender: FDA-Public Use
  Company Number: US-ACTELION-A-US2019-192197

PATIENT
  Sex: Female
  Weight: 60.32 kg

DRUGS (6)
  1. UPTRAVI [Suspect]
     Active Substance: SELEXIPAG
     Indication: PULMONARY ARTERIAL HYPERTENSION
     Dosage: 1200 MCG, BID
     Route: 048
  2. UPTRAVI [Suspect]
     Active Substance: SELEXIPAG
     Dosage: 1400 MCG, BID
     Route: 048
     Dates: start: 20200530
  3. TADALAFIL. [Concomitant]
     Active Substance: TADALAFIL
  4. UPTRAVI [Suspect]
     Active Substance: SELEXIPAG
     Dosage: 800 MCG, BID
     Route: 048
  5. OPSUMIT [Suspect]
     Active Substance: MACITENTAN
     Indication: PULMONARY ARTERIAL HYPERTENSION
     Dosage: 10 MG, QD
     Route: 048
     Dates: start: 20190629
  6. UPTRAVI [Suspect]
     Active Substance: SELEXIPAG
     Dosage: 1000 UNK
     Route: 048

REACTIONS (20)
  - Liver disorder [Unknown]
  - Abdominal distension [Unknown]
  - Insomnia [Unknown]
  - Malaise [Unknown]
  - Vomiting [Unknown]
  - Flatulence [Unknown]
  - Dyspnoea exertional [Unknown]
  - Hospitalisation [Unknown]
  - Fall [Unknown]
  - Arthropathy [Not Recovered/Not Resolved]
  - Portal hypertension [Unknown]
  - Head injury [Unknown]
  - Incorrect product dosage form administered [Unknown]
  - Nausea [Unknown]
  - Diarrhoea [Unknown]
  - Hernia [Not Recovered/Not Resolved]
  - Feeling abnormal [Unknown]
  - Palpitations [Unknown]
  - Abdominal pain upper [Unknown]
  - Ascites [Not Recovered/Not Resolved]
